FAERS Safety Report 21810209 (Version 1)
Quarter: 2023Q1

REPORT INFORMATION
  Report Type: Spontaneous
  Country: IT (occurrence: IT)
  Receive Date: 20230103
  Receipt Date: 20230103
  Transmission Date: 20230418
  Serious: Yes (Hospitalization, Other)
  Sender: FDA-Public Use
  Company Number: IT-AUROBINDO-AUR-APL-2012-05339

PATIENT
  Age: 32 Year
  Sex: Female

DRUGS (4)
  1. LAMOTRIGINE [Suspect]
     Active Substance: LAMOTRIGINE
     Indication: Bipolar II disorder
     Dosage: 300 MG,TOTAL,
     Route: 048
     Dates: start: 20121128, end: 20121128
  2. ALPRAZOLAM [Suspect]
     Active Substance: ALPRAZOLAM
     Indication: Bipolar II disorder
     Dosage: 1 G,TOTAL,
     Route: 048
     Dates: start: 20121128, end: 20121128
  3. BUPROPION HYDROCHLORIDE [Suspect]
     Active Substance: BUPROPION HYDROCHLORIDE
     Indication: Bipolar II disorder
     Dosage: 450 MG,TOTAL,
     Route: 048
     Dates: start: 20121128, end: 20121128
  4. CHLORPROMAZINE HYDROCHLORIDE [Suspect]
     Active Substance: CHLORPROMAZINE HYDROCHLORIDE
     Indication: Bipolar II disorder
     Dosage: 150 MG,TOTAL,
     Route: 048
     Dates: start: 20121128, end: 20121128

REACTIONS (6)
  - Psychomotor skills impaired [Recovered/Resolved]
  - Drug abuse [Unknown]
  - Psychiatric symptom [Unknown]
  - Feelings of worthlessness [Unknown]
  - Feeling of despair [Unknown]
  - Overdose [Recovered/Resolved]

NARRATIVE: CASE EVENT DATE: 20121128
